FAERS Safety Report 6173039-6 (Version None)
Quarter: 2009Q2

REPORT INFORMATION
  Report Type: 
  Country: None (occurrence: None)
  Receive Date: 20090430
  Receipt Date: 20090420
  Transmission Date: 20091009
  Serious: Yes (Other)
  Sender: FDA-Public Use
  Company Number: US-AMGEN-QUU343612

PATIENT
  Sex: Female
  Weight: 49.9 kg

DRUGS (4)
  1. ENBREL [Suspect]
     Indication: PSORIATIC ARTHROPATHY
     Dates: end: 20090101
  2. HUMIRA [Suspect]
     Indication: PSORIATIC ARTHROPATHY
     Route: 058
     Dates: start: 20090201
  3. INSULIN [Concomitant]
     Indication: PSORIATIC ARTHROPATHY
  4. THIAMAZOLE [Concomitant]

REACTIONS (9)
  - ARTHROPATHY [None]
  - HEART RATE INCREASED [None]
  - JOINT SWELLING [None]
  - MUSCULOSKELETAL CHEST PAIN [None]
  - NECK PAIN [None]
  - POOR PERIPHERAL CIRCULATION [None]
  - PSORIASIS [None]
  - SKIN DISORDER [None]
  - SKIN TIGHTNESS [None]
